FAERS Safety Report 7392960-4 (Version None)
Quarter: 2011Q2

REPORT INFORMATION
  Report Type: 
  Country: None (occurrence: None)
  Receive Date: 20110404
  Receipt Date: 20110322
  Transmission Date: 20111010
  Serious: Yes (Death)
  Sender: FDA-Public Use
  Company Number: JP-CELGENEUS-087-21880-11030006

PATIENT
  Sex: Male

DRUGS (10)
  1. LENADEX [Suspect]
     Indication: MULTIPLE MYELOMA
     Dosage: 8 MILLIGRAM
     Route: 048
     Dates: start: 20110215, end: 20110216
  2. ZYLORIC [Concomitant]
     Indication: ILL-DEFINED DISORDER
     Dosage: 100 MILLIGRAM
     Route: 048
     Dates: start: 20100915, end: 20110226
  3. LENDORMIN D [Concomitant]
     Indication: ILL-DEFINED DISORDER
     Dosage: .25 MILLIGRAM
     Route: 048
     Dates: start: 20100915, end: 20110226
  4. SERENACE [Concomitant]
     Indication: ILL-DEFINED DISORDER
     Dosage: .75 MILLIGRAM
     Route: 048
     Dates: start: 20101005, end: 20110226
  5. TAKEPRON [Concomitant]
     Indication: ILL-DEFINED DISORDER
     Dosage: 15 MILLIGRAM
     Route: 048
     Dates: start: 20100915, end: 20110226
  6. LASIX [Concomitant]
     Indication: ILL-DEFINED DISORDER
     Dosage: 20 MILLIGRAM
     Route: 048
     Dates: start: 20101001, end: 20110226
  7. REVLIMID [Suspect]
     Indication: MULTIPLE MYELOMA
     Dosage: 15 MILLIGRAM
     Route: 048
     Dates: start: 20110214, end: 20110216
  8. ALDACTONE [Concomitant]
     Indication: ILL-DEFINED DISORDER
     Dosage: 25 MILLIGRAM
     Route: 048
     Dates: start: 20101001, end: 20110226
  9. POWDERED RHUBARB [Concomitant]
     Indication: ILL-DEFINED DISORDER
     Dosage: 1 GRAM
     Route: 048
     Dates: start: 20101005, end: 20110226
  10. ASPIRIN [Concomitant]
     Indication: PROPHYLAXIS
     Dosage: 100 MILLIGRAM
     Route: 048
     Dates: start: 20110214, end: 20110216

REACTIONS (1)
  - RENAL FAILURE [None]
